FAERS Safety Report 7762929-6 (Version None)
Quarter: 2011Q3

REPORT INFORMATION
  Report Type: 
  Country: None (occurrence: None)
  Receive Date: 20110920
  Receipt Date: 20110913
  Transmission Date: 20111222
  Serious: Yes (Other)
  Sender: FDA-Public Use
  Company Number: PHHY2011AU81327

PATIENT
  Sex: Male

DRUGS (4)
  1. OXALIPLATIN [Suspect]
     Dosage: 130 MG DAILY
  2. OXALIPLATIN [Suspect]
     Indication: COLORECTAL CANCER STAGE III
     Dosage: 130 MG DAILY
     Dates: start: 20110421
  3. ONDANSETRON [Concomitant]
     Route: 042
  4. DEXAMETHASONE [Concomitant]
     Route: 042

REACTIONS (1)
  - LOSS OF CONSCIOUSNESS [None]
